FAERS Safety Report 9390280 (Version 3)
Quarter: 2013Q3

REPORT INFORMATION
  Report Type: Spontaneous
  Country: PL (occurrence: PL)
  Receive Date: 20130709
  Receipt Date: 20130802
  Transmission Date: 20140515
  Serious: Yes (Hospitalization)
  Sender: FDA-Public Use
  Company Number: PL-AMGEN-POLSP2013047518

PATIENT
  Age: 10 Year
  Sex: Female
  Weight: 134 kg

DRUGS (5)
  1. ENBREL [Suspect]
     Indication: JUVENILE IDIOPATHIC ARTHRITIS
     Dosage: 25 MG, WEEKLY
     Route: 058
     Dates: start: 20130423, end: 20130626
  2. METYPRED                           /00049601/ [Concomitant]
     Dosage: 2 MG, 1X/DAY
     Route: 048
  3. HELICID                            /00661201/ [Concomitant]
     Dosage: 10 MG, QD
     Route: 048
  4. ASPARGIN                           /00466901/ [Concomitant]
     Dosage: 1 TABLET, 1X/DAY
     Route: 048
  5. FOLIC ACID [Concomitant]
     Dosage: 15 MG, WEEKLY
     Route: 048
     Dates: start: 20130626

REACTIONS (4)
  - Injection site erythema [Recovered/Resolved]
  - Injection site extravasation [Recovered/Resolved]
  - Malaise [Recovered/Resolved]
  - Chills [Recovered/Resolved]
